FAERS Safety Report 7547779-8 (Version None)
Quarter: 2011Q2

REPORT INFORMATION
  Report Type: 
  Country: None (occurrence: None)
  Receive Date: 20110615
  Receipt Date: 20110606
  Transmission Date: 20111010
  Serious: Yes (Other)
  Sender: FDA-Public Use
  Company Number: NL-AMGEN-NLDSP2011029340

PATIENT
  Age: 55 Year
  Sex: Female

DRUGS (3)
  1. ENBREL [Suspect]
     Indication: RHEUMATOID ARTHRITIS
     Dosage: 50 MG, WEEKLY
     Dates: start: 20101213, end: 20110201
  2. ENBREL [Suspect]
     Dosage: UNK
     Dates: start: 20110501
  3. ACETAMINOPHEN [Concomitant]
     Dosage: UNK

REACTIONS (1)
  - TONSILLECTOMY [None]
